FAERS Safety Report 10351556 (Version 1)
Quarter: 2014Q3

REPORT INFORMATION
  Report Type: Spontaneous
  Country: CN (occurrence: CN)
  Receive Date: 20140730
  Receipt Date: 20140730
  Transmission Date: 20150326
  Serious: Yes (Other)
  Sender: FDA-Public Use
  Company Number: CN-ABBVIE-14P-035-1265504-00

PATIENT
  Age: 14 Month
  Sex: Male

DRUGS (2)
  1. DEPAKINE [Suspect]
     Active Substance: VALPROATE SODIUM
     Route: 048
  2. DEPAKINE [Suspect]
     Active Substance: VALPROATE SODIUM
     Indication: EPILEPSY
     Route: 048
     Dates: start: 201403

REACTIONS (3)
  - Epilepsy [Recovered/Resolved]
  - Strabismus [Recovered/Resolved]
  - Asthenia [Recovered/Resolved]
